FAERS Safety Report 17481421 (Version 5)
Quarter: 2022Q3

REPORT INFORMATION
  Report Type: Report from Study
  Country: US (occurrence: US)
  Receive Date: 20200302
  Receipt Date: 20220905
  Transmission Date: 20221027
  Serious: Yes (Hospitalization)
  Sender: FDA-Public Use
  Company Number: US-ACADIA PHARMACEUTICALS INC.-ACA-2020-PIM-000583

PATIENT
  Age: 58 Year
  Sex: Male

DRUGS (9)
  1. NUPLAZID [Suspect]
     Active Substance: PIMAVANSERIN TARTRATE
     Indication: Parkinson^s disease psychosis
     Dosage: 34 MILLIGRAM, QD
     Route: 048
     Dates: start: 20200115, end: 202201
  2. NUPLAZID [Suspect]
     Active Substance: PIMAVANSERIN TARTRATE
     Indication: Hallucination
     Dosage: 34 MILLIGRAM, QD
     Route: 048
     Dates: start: 2022
  3. NUPLAZID [Suspect]
     Active Substance: PIMAVANSERIN TARTRATE
     Indication: Delusion
  4. DEPAKOTE [Concomitant]
     Active Substance: DIVALPROEX SODIUM
     Dosage: 500 MILLIGRAM DR
  5. DEPAKOTE [Concomitant]
     Active Substance: DIVALPROEX SODIUM
     Dosage: 250 MILLIGRAM ER
  6. HUMALOG [Concomitant]
     Active Substance: INSULIN LISPRO
     Dosage: 100 MILLILITER
  7. QUINAPRIL [Concomitant]
     Active Substance: QUINAPRIL
     Dosage: 20 MILLIGRAM
  8. ROPINIROLE [Concomitant]
     Active Substance: ROPINIROLE
     Dosage: 5 MILLIGRAM
  9. TRAVATAN Z [Concomitant]
     Active Substance: TRAVOPROST
     Dosage: 0.004%

REACTIONS (6)
  - Localised infection [Recovered/Resolved]
  - Product dose omission issue [Recovered/Resolved]
  - Disease progression [Recovered/Resolved]
  - Adverse event [Recovered/Resolved]
  - Product dose omission issue [Recovered/Resolved]
  - Fall [Recovered/Resolved]

NARRATIVE: CASE EVENT DATE: 20200207
